FAERS Safety Report 8534215-8 (Version None)
Quarter: 2012Q3

REPORT INFORMATION
  Report Type: 
  Country: None (occurrence: None)
  Receive Date: 20120724
  Receipt Date: 20120716
  Transmission Date: 20120928
  Serious: Yes (Disabling)
  Sender: FDA-Public Use
  Company Number: CA-ASTRAZENECA-2012SE49712

PATIENT
  Age: 69 Year
  Sex: Female

DRUGS (2)
  1. OMEPRAZOLE (PRISOLEC) [Suspect]
     Indication: HIATUS HERNIA
     Route: 048
  2. NEXIUM [Suspect]
     Indication: HIATUS HERNIA
     Route: 048

REACTIONS (2)
  - FEMUR FRACTURE [None]
  - OSTEOPENIA [None]
